FAERS Safety Report 11816187 (Version 2)
Quarter: 2016Q1

REPORT INFORMATION
  Report Type: Spontaneous
  Country: US (occurrence: US)
  Receive Date: 20151209
  Receipt Date: 20160105
  Transmission Date: 20160525
  Serious: Yes (Other)
  Sender: FDA-Public Use
  Company Number: US-ALLERGAN-1525663US

PATIENT
  Age: 58 Year
  Sex: Female

DRUGS (1)
  1. PREDNISOLONE ACETATE, 1.0% [Suspect]
     Active Substance: PREDNISOLONE ACETATE
     Indication: OPHTHALMIC HERPES SIMPLEX
     Dosage: UNK
     Route: 047

REACTIONS (7)
  - Ulcerative keratitis [Unknown]
  - Off label use [Unknown]
  - Corneal perforation [Unknown]
  - Drug ineffective [Unknown]
  - Keratitis interstitial [Unknown]
  - Retinal detachment [Unknown]
  - Endophthalmitis [Unknown]
